FAERS Safety Report 17180189 (Version 1)
Quarter: 2019Q4

REPORT INFORMATION
  Report Type: Spontaneous
  Country: SE (occurrence: SE)
  Receive Date: 20191220
  Receipt Date: 20191220
  Transmission Date: 20200122
  Serious: Yes (Hospitalization)
  Sender: FDA-Public Use
  Company Number: SE-TEVA-2019-SE-1154121

PATIENT
  Sex: Female

DRUGS (6)
  1. PROPAVAN [Suspect]
     Active Substance: PROPIOMAZINE
     Route: 048
     Dates: start: 20181112, end: 20181112
  2. MONTELUKAST [Suspect]
     Active Substance: MONTELUKAST SODIUM
     Route: 048
     Dates: start: 20181112, end: 20181112
  3. OMEPRAZOL ABECE [Suspect]
     Active Substance: OMEPRAZOLE
     Route: 048
     Dates: start: 20181112, end: 20181112
  4. PAMOL 500 MG FILMDRAGERAD TABLETT [Suspect]
     Active Substance: ACETAMINOPHEN
     Route: 048
     Dates: start: 20181112, end: 20181112
  5. FRONTIN [Suspect]
     Active Substance: ALPRAZOLAM
     Dosage: HUNGARIAN DRUG
     Route: 048
     Dates: start: 20181112, end: 20181112
  6. TEPPZIN [XYLOMETAZOLINE] [Suspect]
     Active Substance: XYLOMETAZOLINE
     Route: 048
     Dates: start: 20181112, end: 20181112

REACTIONS (2)
  - Intentional self-injury [Unknown]
  - Intentional overdose [Unknown]

NARRATIVE: CASE EVENT DATE: 20181112
